FAERS Safety Report 11629174 (Version 1)
Quarter: 2015Q4

REPORT INFORMATION
  Report Type: Spontaneous
  Country: BR (occurrence: BR)
  Receive Date: 20151014
  Receipt Date: 20151014
  Transmission Date: 20160304
  Serious: Yes (Death, Hospitalization)
  Sender: FDA-Public Use
  Company Number: BR-DSJP-DSE-2015-131415

PATIENT

DRUGS (2)
  1. INGREDIENTS UNKNOWN [Concomitant]
     Active Substance: UNSPECIFIED INGREDIENT
     Dosage: UNK
  2. BENICAR [Suspect]
     Active Substance: OLMESARTAN MEDOXOMIL
     Indication: HYPERTENSION
     Dosage: UNK, BID
     Dates: end: 2011

REACTIONS (3)
  - Urinary tract infection [Unknown]
  - Hypotension [Unknown]
  - Nosocomial infection [Fatal]

NARRATIVE: CASE EVENT DATE: 2010
